FAERS Safety Report 16691870 (Version 1)
Quarter: 2019Q3

REPORT INFORMATION
  Report Type: Other
  Country: US (occurrence: US)
  Receive Date: 20190812
  Receipt Date: 20190812
  Transmission Date: 20191004
  Serious: Yes (Hospitalization, Other)
  Sender: FDA-Public Use
  Company Number: US-BIOVITRUM-2019US2408

PATIENT
  Sex: Female

DRUGS (1)
  1. KINERET [Suspect]
     Active Substance: ANAKINRA
     Dosage: INJECTS AN EXTRA 100MG AS NEEDED FOR FLARES.
     Route: 058
     Dates: start: 2017

REACTIONS (4)
  - Hypoxia [Not Recovered/Not Resolved]
  - Adnexal torsion [Recovered/Resolved]
  - Injection site pain [Not Recovered/Not Resolved]
  - Choking [Recovered/Resolved]
